FAERS Safety Report 8520504-X (Version None)
Quarter: 2012Q3

REPORT INFORMATION
  Report Type: 
  Country: None (occurrence: None)
  Receive Date: 20120712
  Receipt Date: 20120706
  Transmission Date: 20120928
  Serious: Yes (Hospitalization)
  Sender: FDA-Public Use
  Company Number: 2012031793

PATIENT
  Age: 55 Year
  Sex: Female
  Weight: 95.2554 kg

DRUGS (40)
  1. HUMALOG (INSUIN LISPRO) [Concomitant]
  2. CRESTOR [Concomitant]
  3. MORPHINE SULFATE IR (MORPHINE SULFATE) [Concomitant]
  4. POTASSIUM CL (POTASSIUM CHLORIDE) [Concomitant]
  5. ASPIRIN [Concomitant]
  6. DILTIAZEM [Concomitant]
  7. SALAGEN [Concomitant]
  8. NEURONTIN [Concomitant]
  9. PRIVIGEN [Suspect]
     Indication: MULTIPLE SCLEROSIS
     Dosage: (25 G 1X/3 WEEKS, MAX RATE OF 454 ML PER HOUR INTRAVENOUS (NOT OTHERWISE SPECIFIED)), (25 G LX/3 WEE
     Route: 042
     Dates: start: 20120705
  10. PRIVIGEN [Suspect]
     Indication: HYPOGAMMAGLOBULINAEMIA
     Dosage: (25 G 1X/3 WEEKS, MAX RATE OF 454 ML PER HOUR INTRAVENOUS (NOT OTHERWISE SPECIFIED)), (25 G LX/3 WEE
     Route: 042
     Dates: start: 20120705
  11. PRIVIGEN [Suspect]
     Indication: SYSTEMIC LUPUS ERYTHEMATOSUS
     Dosage: (25 G 1X/3 WEEKS, MAX RATE OF 454 ML PER HOUR INTRAVENOUS (NOT OTHERWISE SPECIFIED)), (25 G LX/3 WEE
     Route: 042
     Dates: start: 20120705
  12. PRIVIGEN [Suspect]
     Indication: MULTIPLE SCLEROSIS
     Dosage: (25 G 1X/3 WEEKS, MAX RATE OF 454 ML PER HOUR INTRAVENOUS (NOT OTHERWISE SPECIFIED)), (25 G LX/3 WEE
     Route: 042
     Dates: start: 20120426
  13. PRIVIGEN [Suspect]
     Indication: HYPOGAMMAGLOBULINAEMIA
     Dosage: (25 G 1X/3 WEEKS, MAX RATE OF 454 ML PER HOUR INTRAVENOUS (NOT OTHERWISE SPECIFIED)), (25 G LX/3 WEE
     Route: 042
     Dates: start: 20120426
  14. PRIVIGEN [Suspect]
     Indication: SYSTEMIC LUPUS ERYTHEMATOSUS
     Dosage: (25 G 1X/3 WEEKS, MAX RATE OF 454 ML PER HOUR INTRAVENOUS (NOT OTHERWISE SPECIFIED)), (25 G LX/3 WEE
     Route: 042
     Dates: start: 20120426
  15. PRIVIGEN [Suspect]
     Indication: MULTIPLE SCLEROSIS
     Dosage: (25 G 1X/3 WEEKS, MAX RATE OF 454 ML PER HOUR INTRAVENOUS (NOT OTHERWISE SPECIFIED)), (25 G LX/3 WEE
     Route: 042
     Dates: start: 20111122
  16. PRIVIGEN [Suspect]
     Indication: HYPOGAMMAGLOBULINAEMIA
     Dosage: (25 G 1X/3 WEEKS, MAX RATE OF 454 ML PER HOUR INTRAVENOUS (NOT OTHERWISE SPECIFIED)), (25 G LX/3 WEE
     Route: 042
     Dates: start: 20111122
  17. PRIVIGEN [Suspect]
     Indication: SYSTEMIC LUPUS ERYTHEMATOSUS
     Dosage: (25 G 1X/3 WEEKS, MAX RATE OF 454 ML PER HOUR INTRAVENOUS (NOT OTHERWISE SPECIFIED)), (25 G LX/3 WEE
     Route: 042
     Dates: start: 20111122
  18. PRIVIGEN [Suspect]
     Indication: MULTIPLE SCLEROSIS
     Dosage: (25 G 1X/3 WEEKS, MAX RATE OF 454 ML PER HOUR INTRAVENOUS (NOT OTHERWISE SPECIFIED)), (25 G LX/3 WEE
     Route: 042
     Dates: start: 20111109
  19. PRIVIGEN [Suspect]
     Indication: HYPOGAMMAGLOBULINAEMIA
     Dosage: (25 G 1X/3 WEEKS, MAX RATE OF 454 ML PER HOUR INTRAVENOUS (NOT OTHERWISE SPECIFIED)), (25 G LX/3 WEE
     Route: 042
     Dates: start: 20111109
  20. PRIVIGEN [Suspect]
     Indication: SYSTEMIC LUPUS ERYTHEMATOSUS
     Dosage: (25 G 1X/3 WEEKS, MAX RATE OF 454 ML PER HOUR INTRAVENOUS (NOT OTHERWISE SPECIFIED)), (25 G LX/3 WEE
     Route: 042
     Dates: start: 20111109
  21. FOLIC ACID [Concomitant]
  22. ISOSORBIDE MN (ISOSORBIDE MONONITRATE) [Concomitant]
  23. VITAMIN D (ERGOCALCIEROL) [Concomitant]
  24. EPINEPHRINE [Concomitant]
  25. NITROSTAT [Concomitant]
  26. PLAVIX [Concomitant]
  27. VITAMIN B (VITAMIN B) [Concomitant]
  28. DIPHENHYDRAMINE HCL [Concomitant]
  29. LANTUS [Concomitant]
  30. WARFARIN SODIUM [Concomitant]
  31. ATELVIA (RISEDRONATE SODIUM) [Concomitant]
  32. AZATHIOPRINE [Concomitant]
  33. MORPHINE SULFATE CR (MORPHINE SULFATE) [Concomitant]
  34. PREDNISONE TAB [Concomitant]
  35. DIOVAN [Concomitant]
  36. CALCIUM CARBONATE [Concomitant]
  37. PERCOCET [Concomitant]
  38. LEVOXYL [Concomitant]
  39. VITAMIN B 12 (VITAMIN B12 NOS) [Concomitant]
  40. PRILOSEC [Concomitant]

REACTIONS (6)
  - HEADACHE [None]
  - FATIGUE [None]
  - OFF LABEL USE [None]
  - NEPHROLITHIASIS [None]
  - CHEST PAIN [None]
  - INTERNATIONAL NORMALISED RATIO INCREASED [None]
